FAERS Safety Report 21108512 (Version 1)
Quarter: 2022Q3

REPORT INFORMATION
  Report Type: Spontaneous
  Country: CN (occurrence: CN)
  Receive Date: 20220721
  Receipt Date: 20220721
  Transmission Date: 20221027
  Serious: Yes (Other)
  Sender: FDA-Public Use
  Company Number: None

PATIENT
  Age: 54 Year
  Sex: Female
  Weight: 59 kg

DRUGS (6)
  1. CYCLOPHOSPHAMIDE [Suspect]
     Active Substance: CYCLOPHOSPHAMIDE
     Indication: Invasive ductal breast carcinoma
     Dosage: 0.96 G, QD, CYCLOPHOSPHAMIDE FOR INJECTION (0.96G) + 0.9% SODIUM CHLORIDE INJECTION (100ML)
     Route: 041
     Dates: start: 20220621, end: 20220621
  2. CYCLOPHOSPHAMIDE [Suspect]
     Active Substance: CYCLOPHOSPHAMIDE
     Indication: HER2 protein overexpression
  3. SODIUM CHLORIDE [Suspect]
     Active Substance: SODIUM CHLORIDE
     Indication: Medication dilution
     Dosage: 100 ML, QD, CYCLOPHOSPHAMIDE FOR INJECTION (0.96G) + 0.9% SODIUM CHLORIDE INJECTION (100ML)
     Route: 041
     Dates: start: 20220621, end: 20220621
  4. SODIUM CHLORIDE [Suspect]
     Active Substance: SODIUM CHLORIDE
     Dosage: 250 ML, QD, DOCETAXEL INJECTION (120MG) + 0.9% SODIUM CHLORIDE INJECTION (250ML)
     Route: 041
     Dates: start: 20220621, end: 20220621
  5. DOCETAXEL [Suspect]
     Active Substance: DOCETAXEL
     Indication: Invasive ductal breast carcinoma
     Dosage: 120 MG, QD, DOCETAXEL INJECTION (120MG) + 0.9% SODIUM CHLORIDE INJECTION (250ML)
     Route: 041
     Dates: start: 20220621, end: 20220621
  6. DOCETAXEL [Suspect]
     Active Substance: DOCETAXEL
     Indication: HER2 protein overexpression

REACTIONS (1)
  - White blood cell count decreased [Unknown]

NARRATIVE: CASE EVENT DATE: 20220712
